FAERS Safety Report 7478617-X (Version None)
Quarter: 2011Q2

REPORT INFORMATION
  Report Type: 
  Country: None (occurrence: None)
  Receive Date: 20110511
  Receipt Date: 20110511
  Transmission Date: 20111010
  Serious: Yes (Other)
  Sender: FDA-Public Use
  Company Number: None

PATIENT
  Sex: Male

DRUGS (1)
  1. HYDROCODONE BITARTRATE + ACETAMINOPHEN [Suspect]
     Indication: PAIN
     Dosage: 1 TAB HYDRO 7.5 APAP 500MG X 4QD ORAL
     Route: 048
     Dates: start: 20110316, end: 20110411

REACTIONS (5)
  - VOMITING [None]
  - NAUSEA [None]
  - ABDOMINAL PAIN UPPER [None]
  - ASTHENIA [None]
  - FEELING ABNORMAL [None]
